FAERS Safety Report 21739170 (Version 1)
Quarter: 2022Q4

REPORT INFORMATION
  Report Type: Spontaneous
  Country: GB (occurrence: GB)
  Receive Date: 20221216
  Receipt Date: 20221216
  Transmission Date: 20230113
  Serious: Yes (Hospitalization, Other)
  Sender: FDA-Public Use
  Company Number: GB-MHRA-MIDB-36533b30-28ff-44b8-9436-f7b5968da35d

PATIENT
  Age: 76 Year
  Sex: Male

DRUGS (3)
  1. FLUOXETINE [Suspect]
     Active Substance: FLUOXETINE HYDROCHLORIDE
     Indication: Product used for unknown indication
     Dosage: 40 MILLIGRAM, ONCE A DAY (20MG CAPSULES TWO EVERY MORNING)
     Route: 065
  2. Hydromol [Concomitant]
     Indication: Product used for unknown indication
     Dosage: APPLY TO SKIN OR USE AS A SOAP SUBSTITUTE
     Route: 065
  3. PHENERGAN [Concomitant]
     Active Substance: PROMETHAZINE HYDROCHLORIDE
     Indication: Product used for unknown indication
     Dosage: 25 MILLIGRAM, ONCE A DAY (EVERY NIGHT)
     Route: 065

REACTIONS (2)
  - Osteoporosis [Unknown]
  - Femoral neck fracture [Unknown]
